FAERS Safety Report 24171324 (Version 1)
Quarter: 2024Q3

REPORT INFORMATION
  Report Type: Spontaneous
  Country: US (occurrence: US)
  Receive Date: 20240805
  Receipt Date: 20240805
  Transmission Date: 20241017
  Serious: No
  Sender: RANBAXY
  Company Number: US-SUN PHARMACEUTICAL INDUSTRIES LTD-2024R1-456155

PATIENT
  Sex: Female

DRUGS (1)
  1. ODOMZO [Suspect]
     Active Substance: SONIDEGIB
     Indication: Product used for unknown indication
     Dosage: UNK UNK, DAILY
     Route: 048

REACTIONS (1)
  - Product dose omission issue [Not Recovered/Not Resolved]
